FAERS Safety Report 5673164-X (Version None)
Quarter: 2008Q1

REPORT INFORMATION
  Report Type: 
  Country: None (occurrence: None)
  Receive Date: 20080319
  Receipt Date: 20080313
  Transmission Date: 20080703
  Serious: Yes (Death, Other)
  Sender: FDA-Public Use
  Company Number: HK-BRISTOL-MYERS SQUIBB COMPANY-14115422

PATIENT
  Age: 43 Year
  Sex: Male

DRUGS (1)
  1. SPRYCEL [Suspect]
     Indication: CHRONIC MYELOID LEUKAEMIA
     Dosage: INCREASED TO 100MG 08JAN08.
     Route: 048
     Dates: start: 20071215, end: 20080108

REACTIONS (6)
  - DEATH [None]
  - FEBRILE NEUTROPENIA [None]
  - GENERAL PHYSICAL HEALTH DETERIORATION [None]
  - HAEMORRHAGE INTRACRANIAL [None]
  - THROMBOCYTOPENIA [None]
  - WHITE BLOOD CELL COUNT INCREASED [None]
